FAERS Safety Report 6668572-4 (Version None)
Quarter: 2010Q2

REPORT INFORMATION
  Report Type: 
  Country: None (occurrence: None)
  Receive Date: 20100406
  Receipt Date: 20100331
  Transmission Date: 20101027
  Serious: Yes (Other)
  Sender: FDA-Public Use
  Company Number: US-PERRIGO-10US008377

PATIENT
  Sex: Male
  Weight: 106.58 kg

DRUGS (2)
  1. PHENOL 1.4% CHERRY 328 [Suspect]
     Indication: OROPHARYNGEAL PAIN
     Dosage: 4 TO 5 SPRAYS
     Route: 042
     Dates: start: 20090201, end: 20090201
  2. UNSPECIFIED ANTIOBIOTIC [Concomitant]
     Indication: UPPER RESPIRATORY TRACT INFECTION
     Dosage: UNK
     Route: 048
     Dates: start: 20090201, end: 20090201

REACTIONS (3)
  - DYSPNOEA [None]
  - HYPERSENSITIVITY [None]
  - PHARYNGEAL OEDEMA [None]
